FAERS Safety Report 10214594 (Version 2)
Quarter: 2014Q2

REPORT INFORMATION
  Report Type: Spontaneous
  Country: JP (occurrence: JP)
  Receive Date: 20140603
  Receipt Date: 20140612
  Transmission Date: 20141212
  Serious: Yes (Hospitalization)
  Sender: FDA-Public Use
  Company Number: JP-GLAXOSMITHKLINE-B0998496A

PATIENT
  Age: 83 Year
  Sex: Female
  Weight: 45 kg

DRUGS (4)
  1. VALTREX [Suspect]
     Indication: HERPES ZOSTER
     Dosage: 1000MG TWICE PER DAY
     Route: 048
     Dates: start: 20140520, end: 20140524
  2. ARICEPT [Concomitant]
     Indication: DEMENTIA
     Dosage: 10MG PER DAY
     Route: 048
  3. MEMARY [Concomitant]
     Indication: DEMENTIA
     Dosage: 5MG PER DAY
     Route: 048
  4. RISPERDAL [Concomitant]
     Indication: INSOMNIA
     Dosage: .5MG PER DAY
     Route: 048

REACTIONS (3)
  - Renal failure acute [Recovering/Resolving]
  - Decreased appetite [Recovering/Resolving]
  - General physical health deterioration [Unknown]
